FAERS Safety Report 5134816-3 (Version None)
Quarter: 2006Q4

REPORT INFORMATION
  Report Type: 
  Country: None (occurrence: None)
  Receive Date: 20061025
  Receipt Date: 20060923
  Transmission Date: 20070319
  Serious: Yes (Life-Threatening, Hospitalization)
  Sender: FDA-Public Use
  Company Number: PHEH2006US12705

PATIENT
  Age: 26 Year
  Sex: Female

DRUGS (1)
  1. TRILEPTAL [Suspect]

REACTIONS (12)
  - BLADDER CATHETERISATION [None]
  - BLADDER DISTENSION [None]
  - DEHYDRATION [None]
  - EMOTIONAL DISTRESS [None]
  - FACIAL PAIN [None]
  - FOAMING AT MOUTH [None]
  - OEDEMA [None]
  - OVERDOSE [None]
  - SOMNOLENCE [None]
  - TACHYCARDIA [None]
  - VARICOSE VEIN [None]
  - VISION BLURRED [None]
